FAERS Safety Report 10753727 (Version 1)
Quarter: 2015Q1

REPORT INFORMATION
  Report Type: Spontaneous
  Country: US (occurrence: None)
  Receive Date: 20150129
  Receipt Date: 20150129
  Transmission Date: 20150721
  Serious: No
  Sender: FDA-Public Use
  Company Number: None

PATIENT
  Age: 68 Year
  Sex: Male
  Weight: 88 kg

DRUGS (1)
  1. BYDUREON [Suspect]
     Active Substance: EXENATIDE
     Indication: DIABETES MELLITUS
     Dosage: ONE INJECTION EVERY 7 DAYS
     Route: 030
     Dates: start: 20141203, end: 20150128

REACTIONS (2)
  - Blood glucose increased [None]
  - Injection site mass [None]

NARRATIVE: CASE EVENT DATE: 20150128
